FAERS Safety Report 11786203 (Version 9)
Quarter: 2017Q3

REPORT INFORMATION
  Report Type: Spontaneous
  Country: JP (occurrence: JP)
  Receive Date: 20151130
  Receipt Date: 20170719
  Transmission Date: 20171127
  Serious: Yes (Hospitalization, Other)
  Sender: FDA-Public Use
  Company Number: JP-SA-2015SA193998

PATIENT
  Age: 54 Year
  Sex: Female
  Weight: 49 kg

DRUGS (57)
  1. ELPLAT [Suspect]
     Active Substance: OXALIPLATIN
     Indication: COLON CANCER STAGE IV
     Dosage: INJECTION
     Route: 041
     Dates: start: 20110928, end: 20110928
  2. ELPLAT [Suspect]
     Active Substance: OXALIPLATIN
     Indication: COLON CANCER STAGE IV
     Dosage: INJECTION
     Route: 041
     Dates: start: 20111014, end: 20111014
  3. CALCIUM LEVOFOLINATE [Suspect]
     Active Substance: LEVOLEUCOVORIN CALCIUM
     Indication: COLON CANCER STAGE IV
     Dosage: BI-WEEKLY
     Route: 041
     Dates: start: 20110815, end: 20110816
  4. FLUOROURACIL. [Suspect]
     Active Substance: FLUOROURACIL
     Indication: COLON CANCER STAGE IV
     Dosage: BI-WEEKLY
     Route: 040
     Dates: start: 20110609, end: 20110610
  5. FLUOROURACIL. [Suspect]
     Active Substance: FLUOROURACIL
     Indication: COLON CANCER STAGE IV
     Route: 040
     Dates: start: 20111031, end: 20140123
  6. FLUOROURACIL. [Suspect]
     Active Substance: FLUOROURACIL
     Indication: COLON CANCER STAGE IV
     Dosage: BI-WEEKLY
     Route: 040
     Dates: start: 20110627, end: 20110628
  7. ELPLAT [Suspect]
     Active Substance: OXALIPLATIN
     Indication: COLON CANCER STAGE IV
     Dosage: INJECTION
     Route: 041
     Dates: start: 20110609, end: 20110609
  8. AVASTIN [Suspect]
     Active Substance: BEVACIZUMAB
     Indication: COLON CANCER STAGE IV
     Dosage: BI-WEEKLY
     Route: 041
     Dates: start: 20110829, end: 20110829
  9. AVASTIN [Suspect]
     Active Substance: BEVACIZUMAB
     Indication: COLON CANCER STAGE IV
     Dosage: BI-WEEKLY
     Route: 041
     Dates: start: 20111031, end: 20140123
  10. FLUOROURACIL. [Suspect]
     Active Substance: FLUOROURACIL
     Indication: COLON CANCER STAGE IV
     Dosage: BI-WEEKLY
     Route: 040
     Dates: start: 20110829, end: 20110830
  11. ELPLAT [Suspect]
     Active Substance: OXALIPLATIN
     Indication: COLON CANCER STAGE IV
     Dosage: INJECTION
     Route: 041
     Dates: start: 20110829, end: 20110829
  12. CALCIUM LEVOFOLINATE [Suspect]
     Active Substance: LEVOLEUCOVORIN CALCIUM
     Indication: COLON CANCER STAGE IV
     Dosage: BI-WEEKLY
     Route: 041
     Dates: start: 20110711, end: 20110712
  13. CALCIUM LEVOFOLINATE [Suspect]
     Active Substance: LEVOLEUCOVORIN CALCIUM
     Indication: COLON CANCER STAGE IV
     Dosage: BI-WEEKLY
     Route: 041
     Dates: start: 20111031, end: 20140123
  14. AVASTIN [Suspect]
     Active Substance: BEVACIZUMAB
     Indication: COLON CANCER STAGE IV
     Dosage: BI-WEEKLY
     Route: 041
     Dates: start: 20111014, end: 20111014
  15. AVASTIN [Suspect]
     Active Substance: BEVACIZUMAB
     Indication: COLON CANCER STAGE IV
     Route: 041
     Dates: start: 20140212, end: 20140319
  16. FLUOROURACIL. [Suspect]
     Active Substance: FLUOROURACIL
     Indication: COLON CANCER STAGE IV
     Dosage: BI-WEEKLY
     Route: 040
     Dates: start: 20110912, end: 20110913
  17. FLUOROURACIL. [Suspect]
     Active Substance: FLUOROURACIL
     Indication: COLON CANCER STAGE IV
     Dosage: BI-WEEKLY
     Route: 041
     Dates: start: 20110928, end: 20110929
  18. ELPLAT [Suspect]
     Active Substance: OXALIPLATIN
     Indication: COLON CANCER STAGE IV
     Dosage: INJECTION
     Route: 041
     Dates: start: 20110729, end: 20110729
  19. AVASTIN [Suspect]
     Active Substance: BEVACIZUMAB
     Indication: COLON CANCER STAGE IV
     Dosage: BI-WEEKLY
     Route: 041
     Dates: start: 20110729, end: 20110729
  20. AVASTIN [Suspect]
     Active Substance: BEVACIZUMAB
     Indication: COLON CANCER STAGE IV
     Dosage: BI-WEEKLY
     Route: 041
     Dates: start: 20110928, end: 20110928
  21. FLUOROURACIL. [Suspect]
     Active Substance: FLUOROURACIL
     Indication: COLON CANCER STAGE IV
     Dosage: BI-WEEKLY
     Route: 040
     Dates: start: 20110729, end: 20110730
  22. FLUOROURACIL. [Suspect]
     Active Substance: FLUOROURACIL
     Indication: COLON CANCER STAGE IV
     Dosage: BI-WEEKLY
     Route: 041
     Dates: start: 20110729, end: 20110730
  23. FLUOROURACIL. [Suspect]
     Active Substance: FLUOROURACIL
     Indication: COLON CANCER STAGE IV
     Dosage: BI-WEEKLY
     Route: 040
     Dates: start: 20110815, end: 20110816
  24. FLUOROURACIL. [Suspect]
     Active Substance: FLUOROURACIL
     Indication: COLON CANCER STAGE IV
     Dosage: BI-WEEKLY
     Route: 041
     Dates: start: 20110829, end: 20110830
  25. FLUOROURACIL. [Suspect]
     Active Substance: FLUOROURACIL
     Indication: COLON CANCER STAGE IV
     Dosage: BI-WEEKLY
     Route: 040
     Dates: start: 20111014, end: 20111015
  26. ELPLAT [Suspect]
     Active Substance: OXALIPLATIN
     Indication: COLON CANCER STAGE IV
     Dosage: INJECTION
     Route: 041
     Dates: start: 20110627, end: 20110627
  27. ELPLAT [Suspect]
     Active Substance: OXALIPLATIN
     Indication: COLON CANCER STAGE IV
     Dosage: INJECTION
     Route: 041
     Dates: start: 20110711, end: 20110711
  28. ELPLAT [Suspect]
     Active Substance: OXALIPLATIN
     Indication: COLON CANCER STAGE IV
     Dosage: INJECTION
     Route: 041
     Dates: start: 20140212, end: 20140319
  29. FLUOROURACIL. [Suspect]
     Active Substance: FLUOROURACIL
     Indication: COLON CANCER STAGE IV
     Dosage: BI-WEEKLY
     Route: 041
     Dates: start: 20110609, end: 20110610
  30. FLUOROURACIL. [Suspect]
     Active Substance: FLUOROURACIL
     Indication: COLON CANCER STAGE IV
     Dosage: BI-WEEKLY
     Route: 041
     Dates: start: 20110627, end: 20110628
  31. FLUOROURACIL. [Suspect]
     Active Substance: FLUOROURACIL
     Indication: COLON CANCER STAGE IV
     Dosage: BI-WEEKLY
     Route: 041
     Dates: start: 20110815, end: 20110816
  32. ELPLAT [Suspect]
     Active Substance: OXALIPLATIN
     Indication: COLON CANCER STAGE IV
     Dosage: INJECTION
     Route: 041
     Dates: start: 20110815, end: 20110815
  33. ELPLAT [Suspect]
     Active Substance: OXALIPLATIN
     Indication: COLON CANCER STAGE IV
     Dosage: INJECTION
     Route: 041
     Dates: start: 20110912, end: 20110912
  34. ELPLAT [Suspect]
     Active Substance: OXALIPLATIN
     Indication: COLON CANCER STAGE IV
     Dosage: INJECTION
     Route: 041
     Dates: start: 20111031, end: 20140123
  35. CALCIUM LEVOFOLINATE [Suspect]
     Active Substance: LEVOLEUCOVORIN CALCIUM
     Indication: COLON CANCER STAGE IV
     Dosage: BI-WEEKLY
     Route: 041
     Dates: start: 20110729, end: 20110730
  36. CALCIUM LEVOFOLINATE [Suspect]
     Active Substance: LEVOLEUCOVORIN CALCIUM
     Indication: COLON CANCER STAGE IV
     Dosage: BI-WEEKLY
     Route: 041
     Dates: start: 20110928, end: 20110929
  37. AVASTIN [Suspect]
     Active Substance: BEVACIZUMAB
     Indication: COLON CANCER STAGE IV
     Dosage: BI-WEEKLY
     Route: 041
     Dates: start: 20110815, end: 20110815
  38. AVASTIN [Suspect]
     Active Substance: BEVACIZUMAB
     Indication: COLON CANCER STAGE IV
     Dosage: BI-WEEKLY
     Route: 041
     Dates: start: 20110912, end: 20110912
  39. FLUOROURACIL. [Suspect]
     Active Substance: FLUOROURACIL
     Indication: COLON CANCER STAGE IV
     Dosage: BI-WEEKLY
     Route: 041
     Dates: start: 20110711, end: 20110712
  40. NORVASC [Concomitant]
     Active Substance: AMLODIPINE BESYLATE
     Dates: start: 20110709
  41. ELPLAT [Suspect]
     Active Substance: OXALIPLATIN
     Indication: COLON CANCER STAGE IV
     Dosage: INJECTION
     Route: 041
     Dates: start: 20110711, end: 20110711
  42. CALCIUM LEVOFOLINATE [Suspect]
     Active Substance: LEVOLEUCOVORIN CALCIUM
     Indication: COLON CANCER STAGE IV
     Dosage: BI-WEEKLY
     Route: 041
     Dates: start: 20110829, end: 20110830
  43. CALCIUM LEVOFOLINATE [Suspect]
     Active Substance: LEVOLEUCOVORIN CALCIUM
     Indication: COLON CANCER STAGE IV
     Dosage: BI-WEEKLY
     Route: 041
     Dates: start: 20110912, end: 20110913
  44. CALCIUM LEVOFOLINATE [Suspect]
     Active Substance: LEVOLEUCOVORIN CALCIUM
     Indication: COLON CANCER STAGE IV
     Dosage: BI-WEEKLY
     Route: 041
     Dates: start: 20111014, end: 20111015
  45. CALCIUM LEVOFOLINATE [Suspect]
     Active Substance: LEVOLEUCOVORIN CALCIUM
     Indication: COLON CANCER STAGE IV
     Route: 041
     Dates: start: 20140212, end: 20140319
  46. AVASTIN [Suspect]
     Active Substance: BEVACIZUMAB
     Indication: COLON CANCER STAGE IV
     Dosage: BI-WEEKLY
     Route: 041
     Dates: start: 20110609, end: 20110609
  47. AVASTIN [Suspect]
     Active Substance: BEVACIZUMAB
     Indication: COLON CANCER STAGE IV
     Dosage: BI-WEEKLY
     Route: 041
     Dates: start: 20110711, end: 20110711
  48. FLUOROURACIL. [Suspect]
     Active Substance: FLUOROURACIL
     Indication: COLON CANCER STAGE IV
     Route: 041
     Dates: start: 20111031, end: 20140123
  49. FLUOROURACIL. [Suspect]
     Active Substance: FLUOROURACIL
     Indication: COLON CANCER STAGE IV
     Dosage: BI-WEEKLY
     Route: 040
     Dates: start: 20110711, end: 20110712
  50. FLUOROURACIL. [Suspect]
     Active Substance: FLUOROURACIL
     Indication: COLON CANCER STAGE IV
     Route: 041
     Dates: start: 20140212, end: 20140319
  51. FLUOROURACIL. [Suspect]
     Active Substance: FLUOROURACIL
     Indication: COLON CANCER STAGE IV
     Dosage: BI-WEEKLY
     Route: 041
     Dates: start: 20110912, end: 20110913
  52. CALCIUM LEVOFOLINATE [Suspect]
     Active Substance: LEVOLEUCOVORIN CALCIUM
     Indication: COLON CANCER STAGE IV
     Dosage: BI-WEEKLY
     Route: 041
     Dates: start: 20110609, end: 20110610
  53. CALCIUM LEVOFOLINATE [Suspect]
     Active Substance: LEVOLEUCOVORIN CALCIUM
     Indication: COLON CANCER STAGE IV
     Dosage: BI-WEEKLY
     Route: 041
     Dates: start: 20110627, end: 20110628
  54. AVASTIN [Suspect]
     Active Substance: BEVACIZUMAB
     Indication: COLON CANCER STAGE IV
     Dosage: BI-WEEKLY
     Route: 041
     Dates: start: 20110627, end: 20110627
  55. FLUOROURACIL. [Suspect]
     Active Substance: FLUOROURACIL
     Indication: COLON CANCER STAGE IV
     Dosage: BI-WEEKLY
     Route: 041
     Dates: start: 20111014, end: 20111015
  56. FLUOROURACIL. [Suspect]
     Active Substance: FLUOROURACIL
     Indication: COLON CANCER STAGE IV
     Route: 040
     Dates: start: 20140212, end: 20140319
  57. FLUOROURACIL. [Suspect]
     Active Substance: FLUOROURACIL
     Indication: COLON CANCER STAGE IV
     Dosage: BI-WEEKLY
     Route: 040
     Dates: start: 20110928, end: 20110929

REACTIONS (10)
  - Large intestinal stenosis [Recovering/Resolving]
  - Vomiting [Recovering/Resolving]
  - Neutropenia [Recovered/Resolved]
  - White blood cell count decreased [Unknown]
  - Large intestinal obstruction [Recovered/Resolved]
  - Impaired healing [Unknown]
  - Hypertension [Unknown]
  - Nausea [Recovering/Resolving]
  - Abdominal pain [Recovering/Resolving]
  - Large intestinal obstruction [Recovered/Resolved]

NARRATIVE: CASE EVENT DATE: 20110623
